FAERS Safety Report 23131338 (Version 3)
Quarter: 2024Q1

REPORT INFORMATION
  Report Type: Spontaneous
  Country: PT (occurrence: PT)
  Receive Date: 20231031
  Receipt Date: 20240104
  Transmission Date: 20240410
  Serious: Yes (Hospitalization, Other)
  Sender: FDA-Public Use
  Company Number: PT-CELLTRION HEALTHCARE HUNGARY KFT-2023PT012084

PATIENT
  Age: 24 Year
  Sex: Female

DRUGS (8)
  1. ADALIMUMAB [Suspect]
     Active Substance: ADALIMUMAB\ISOPROPYL ALCOHOL
     Indication: Crohn^s disease
     Dosage: 40 MG, QWK (DOSAGE2: UNIT=NOT AVAILABLE)
     Route: 065
  2. ADALIMUMAB [Suspect]
     Active Substance: ADALIMUMAB\ISOPROPYL ALCOHOL
     Dosage: UNK; DOSAGE1: UNIT=NOT AVAILABLE
     Route: 065
  3. ADALIMUMAB [Suspect]
     Active Substance: ADALIMUMAB\ISOPROPYL ALCOHOL
     Indication: Psoriasis
     Dosage: UNK
     Route: 065
  4. BUDESONIDE [Concomitant]
     Active Substance: BUDESONIDE
     Indication: Product used for unknown indication
     Dosage: UNK
     Route: 065
  5. BUDESONIDE [Concomitant]
     Active Substance: BUDESONIDE
     Dosage: UNK
     Route: 065
  6. BUDESONIDE [Concomitant]
     Active Substance: BUDESONIDE
     Dosage: UNK
     Route: 065
  7. PREDNISOLONE [Concomitant]
     Active Substance: PREDNISOLONE
     Indication: Product used for unknown indication
     Dosage: UNK
     Route: 065
  8. USTEKINUMAB [Concomitant]
     Active Substance: USTEKINUMAB
     Indication: Product used for unknown indication
     Dosage: UNK
     Route: 065

REACTIONS (11)
  - Large intestinal stenosis [Unknown]
  - Large intestinal obstruction [Unknown]
  - Abdominal pain [Unknown]
  - Staphylococcal infection [Recovered/Resolved]
  - Vomiting [Unknown]
  - Intestinal dilatation [Unknown]
  - Malnutrition [Unknown]
  - Treatment failure [Unknown]
  - Drug level below therapeutic [Unknown]
  - Hypotension [Unknown]
  - Gastrointestinal disorder [Unknown]
